FAERS Safety Report 14814419 (Version 1)
Quarter: 2018Q2

REPORT INFORMATION
  Report Type: Spontaneous
  Country: GB (occurrence: GB)
  Receive Date: 20180426
  Receipt Date: 20180426
  Transmission Date: 20180711
  Serious: Yes (Other)
  Sender: FDA-Public Use
  Company Number: GB-MICRO LABS LIMITED-BB2018-00666

PATIENT
  Age: 73 Year
  Sex: Male
  Weight: 108 kg

DRUGS (12)
  1. CO-AMOXICLAV [Concomitant]
     Active Substance: AMOXICILLIN\CLAVULANIC ACID
     Dates: start: 20170925, end: 20171002
  2. IODOFLEX [Concomitant]
     Dosage: USE AS DIRECTED.
     Dates: start: 20171031, end: 20171110
  3. WARFARIN SODIUM. [Concomitant]
     Active Substance: WARFARIN SODIUM
     Dosage: AS DIRECTED.
     Dates: start: 20150113
  4. BETAMETHASONE VALERATE. [Concomitant]
     Active Substance: BETAMETHASONE VALERATE
     Dosage: TWICE A DAY.
     Dates: start: 20150224
  5. DIGOXIN. [Concomitant]
     Active Substance: DIGOXIN
     Dates: start: 20141022
  6. PHENOXYMETHYLPENICILLIN [Concomitant]
     Active Substance: PENICILLIN V
     Dosage: REVIEW AT 1 YEAR TO...
     Dates: start: 20171114
  7. ROZEX (METRONIDAZOLE) [Concomitant]
     Active Substance: METRONIDAZOLE
     Dates: start: 20170826, end: 20170923
  8. SIMVASTATIN. [Suspect]
     Active Substance: SIMVASTATIN
     Dates: start: 20160331
  9. BISOPROLOL [Concomitant]
     Active Substance: BISOPROLOL
     Dates: start: 20141022
  10. AMLODIPINE [Concomitant]
     Active Substance: AMLODIPINE BESYLATE
     Dates: start: 20170109
  11. FLUCLOXACILLIN [Concomitant]
     Active Substance: FLUCLOXACILLIN
     Dates: start: 20171002, end: 20171009
  12. ALLOPURINOL. [Concomitant]
     Active Substance: ALLOPURINOL
     Dates: start: 20151215

REACTIONS (1)
  - Bone pain [Recovered/Resolved]

NARRATIVE: CASE EVENT DATE: 20171114
